FAERS Safety Report 22802827 (Version 3)
Quarter: 2023Q4

REPORT INFORMATION
  Report Type: Report from Study
  Country: BR (occurrence: BR)
  Receive Date: 20230809
  Receipt Date: 20231115
  Transmission Date: 20240110
  Serious: Yes (Other)
  Sender: FDA-Public Use
  Company Number: BR-002147023-NVSC2023BR144136

PATIENT
  Sex: Female

DRUGS (3)
  1. KISQALI [Suspect]
     Active Substance: RIBOCICLIB
     Indication: Breast cancer
     Dosage: UNK
     Route: 065
     Dates: start: 20230613
  2. KISQALI [Suspect]
     Active Substance: RIBOCICLIB
     Dosage: UNK (SECOND CYCLE)
     Route: 065
     Dates: start: 20230711
  3. KISQALI [Suspect]
     Active Substance: RIBOCICLIB
     Dosage: UNK (SECOND CYCLE)
     Route: 065

REACTIONS (10)
  - Lung neoplasm malignant [Recovering/Resolving]
  - Second primary malignancy [Recovering/Resolving]
  - Pleural effusion [Recovering/Resolving]
  - Pulmonary mass [Recovering/Resolving]
  - Malaise [Unknown]
  - Nausea [Recovering/Resolving]
  - Headache [Recovered/Resolved]
  - Decreased appetite [Recovering/Resolving]
  - Pruritus [Recovered/Resolved]
  - Incorrect dose administered [Recovered/Resolved]
